FAERS Safety Report 9442586 (Version 1)
Quarter: 2013Q3

REPORT INFORMATION
  Report Type: Spontaneous
  Country: US (occurrence: None)
  Receive Date: 20130805
  Receipt Date: 20130805
  Transmission Date: 20140515
  Serious: No
  Sender: FDA-Public Use
  Company Number: None

PATIENT
  Age: 49 Year
  Sex: Female

DRUGS (1)
  1. HUMIRA [Suspect]
     Indication: PSORIASIS
     Dosage: DAY1
     Dates: start: 20130730

REACTIONS (6)
  - Local swelling [None]
  - Gait disturbance [None]
  - Skin exfoliation [None]
  - Burning sensation [None]
  - Chills [None]
  - Pyrexia [None]
